FAERS Safety Report 4342620-9 (Version None)
Quarter: 2004Q2

REPORT INFORMATION
  Report Type: 
  Country: None (occurrence: None)
  Receive Date: 20040421
  Receipt Date: 20020115
  Transmission Date: 20050107
  Serious: Yes (Death)
  Sender: FDA-Public Use
  Company Number: 200411214JP

PATIENT
  Age: 71 Year
  Sex: Female

DRUGS (1)
  1. ALLEGRA [Suspect]
     Indication: RHINITIS ALLERGIC

REACTIONS (2)
  - AORTIC ANEURYSM RUPTURE [None]
  - SUDDEN DEATH [None]
